FAERS Safety Report 8539112-X (Version None)
Quarter: 2012Q3

REPORT INFORMATION
  Report Type: 
  Country: None (occurrence: None)
  Receive Date: 20120726
  Receipt Date: 20120724
  Transmission Date: 20120928
  Serious: No
  Sender: FDA-Public Use
  Company Number: PHEH2012US014545

PATIENT
  Sex: Female
  Weight: 130.61 kg

DRUGS (10)
  1. TRICOR [Concomitant]
     Dosage: 145 MG, UNK
  2. ASPIRIN [Concomitant]
  3. LANTUS [Concomitant]
     Dosage: 100 ML, UNK
  4. FLEXPEN [Concomitant]
  5. NOVOLOG [Concomitant]
  6. JANUMET [Concomitant]
     Dosage: 50-500 MG
  7. TASIGNA [Suspect]
     Dosage: 300 MG, BID
     Route: 048
  8. LIPITOR [Concomitant]
     Dosage: 20 MG, UNK
  9. METOPROLOL SUCCINATE [Concomitant]
     Dosage: 50 MG, UNK
  10. LISINOPRIL [Concomitant]
     Dosage: 10 MG, UNK

REACTIONS (2)
  - PRURITUS [None]
  - CONSTIPATION [None]
